FAERS Safety Report 5315172-4 (Version None)
Quarter: 2007Q2

REPORT INFORMATION
  Report Type: 
  Country: None (occurrence: None)
  Receive Date: 20070502
  Receipt Date: 20070321
  Transmission Date: 20071010
  Serious: Yes (Other)
  Sender: FDA-Public Use
  Company Number: US-PFIZER INC-2006029695

PATIENT
  Sex: Female
  Weight: 121.1 kg

DRUGS (11)
  1. BEXTRA [Suspect]
     Indication: ARTHRALGIA
     Route: 048
  2. ACCOLATE [Concomitant]
  3. AMBIEN [Concomitant]
  4. TRAMADOL HCL [Concomitant]
  5. DIAMOX [Concomitant]
  6. PLAVIX [Concomitant]
  7. ALPRAZOLAM [Concomitant]
  8. TOPAMAX [Concomitant]
  9. SUCRALFATE [Concomitant]
  10. PREVACID [Concomitant]
  11. HYDROCHLOROTHIAZIDE [Concomitant]

REACTIONS (1)
  - STEVENS-JOHNSON SYNDROME [None]
